FAERS Safety Report 7342893-4 (Version None)
Quarter: 2011Q1

REPORT INFORMATION
  Report Type: 
  Country: None (occurrence: None)
  Receive Date: 20110310
  Receipt Date: 20110304
  Transmission Date: 20110831
  Serious: Yes (Other)
  Sender: FDA-Public Use
  Company Number: GB-TEVA-269995ISR

PATIENT
  Age: 52 Year
  Sex: Female

DRUGS (5)
  1. NITROFURANTOIN [Suspect]
     Route: 048
     Dates: start: 20051109
  2. NITROFURANTOIN [Suspect]
     Indication: URINARY TRACT INFECTION
     Route: 048
     Dates: start: 20040505
  3. NITROFURANTOIN [Suspect]
     Route: 048
     Dates: start: 20090316
  4. NITROFURANTOIN [Suspect]
     Route: 048
     Dates: start: 20090622
  5. NITROFURANTOIN [Suspect]
     Route: 048
     Dates: start: 20060110

REACTIONS (5)
  - CATARACT [None]
  - VISION BLURRED [None]
  - COLOUR BLINDNESS ACQUIRED [None]
  - HEADACHE [None]
  - ABDOMINAL DISTENSION [None]
